FAERS Safety Report 9374501 (Version 1)
Quarter: 2013Q2

REPORT INFORMATION
  Report Type: Spontaneous
  Country: FR (occurrence: FR)
  Receive Date: 20130628
  Receipt Date: 20130628
  Transmission Date: 20140414
  Serious: Yes (Congenital Anomaly)
  Sender: FDA-Public Use
  Company Number: FR-UCBSA-089541

PATIENT
  Sex: Female

DRUGS (2)
  1. KEPPRA [Suspect]
     Indication: EPILEPSY
     Dosage: DAILY DOSE: 2 TABLETS
     Route: 064
  2. DEPAKINE [Suspect]
     Indication: EPILEPSY
     Dosage: 2 GR DAILY
     Route: 064

REACTIONS (2)
  - Gastroschisis [Recovered/Resolved]
  - Foetal exposure during pregnancy [Recovered/Resolved]
